FAERS Safety Report 17300143 (Version 1)
Quarter: 2020Q1

REPORT INFORMATION
  Report Type: Spontaneous
  Country: GB (occurrence: GB)
  Receive Date: 20200122
  Receipt Date: 20200122
  Transmission Date: 20200409
  Serious: Yes (Hospitalization, Other)
  Sender: FDA-Public Use
  Company Number: GB-PFIZER INC-2020024014

PATIENT
  Age: 69 Year
  Sex: Male

DRUGS (3)
  1. DOCETAXEL. [Suspect]
     Active Substance: DOCETAXEL
     Dosage: 60 MG/M2, CYCLIC (QCY)
     Route: 042
  2. DOCETAXEL. [Suspect]
     Active Substance: DOCETAXEL
     Indication: PROSTATE CANCER
     Dosage: 150 MG, CYCLIC (QCY)
     Route: 042
     Dates: start: 20140826, end: 20140826
  3. DOCETAXEL. [Suspect]
     Active Substance: DOCETAXEL
     Dosage: 150 MG, CYCLIC
     Route: 042
     Dates: start: 20141216, end: 20141216

REACTIONS (9)
  - Pain in extremity [Unknown]
  - Neuropathy peripheral [Unknown]
  - Confusional state [Unknown]
  - Neutropenia [Unknown]
  - Mucosal inflammation [Unknown]
  - Fatigue [Unknown]
  - Oropharyngeal pain [Unknown]
  - Upper respiratory tract infection [Unknown]
  - Alopecia [Unknown]

NARRATIVE: CASE EVENT DATE: 20140828
